FAERS Safety Report 7132457-X (Version None)
Quarter: 2010Q4

REPORT INFORMATION
  Report Type: 
  Country: None (occurrence: None)
  Receive Date: 20101130
  Receipt Date: 20101130
  Transmission Date: 20110411
  Serious: Yes (Other)
  Sender: FDA-Public Use
  Company Number: None

PATIENT
  Age: 32 Year
  Sex: Female
  Weight: 83.9154 kg

DRUGS (1)
  1. SOLOSLIM REGULAR SOLOSLIM [Suspect]
     Indication: OVERWEIGHT
     Dates: start: 20090201, end: 20090531

REACTIONS (1)
  - ARRHYTHMIA [None]
